FAERS Safety Report 13926516 (Version 1)
Quarter: 2017Q3

REPORT INFORMATION
  Report Type: Spontaneous
  Country: US (occurrence: US)
  Receive Date: 20170831
  Receipt Date: 20170831
  Transmission Date: 20171127
  Serious: Yes (Other)
  Sender: FDA-Public Use
  Company Number: US-APOTEX-2017AP017349

PATIENT
  Age: 5 Year
  Sex: Female

DRUGS (4)
  1. MILRINONE LACTATE INJECTION [Suspect]
     Active Substance: MILRINONE LACTATE
     Indication: CARDIAC FAILURE
     Route: 065
  2. VASOPRESSIN. [Suspect]
     Active Substance: VASOPRESSIN
     Indication: CARDIAC FAILURE
     Route: 065
  3. EPINEPHRINE. [Suspect]
     Active Substance: EPINEPHRINE
     Indication: CARDIAC FAILURE
     Route: 065
  4. NOREPINEPHRINE. [Suspect]
     Active Substance: NOREPINEPHRINE
     Indication: CARDIAC FAILURE
     Route: 065

REACTIONS (1)
  - Drug ineffective [Unknown]
